FAERS Safety Report 7119704-5 (Version None)
Quarter: 2010Q4

REPORT INFORMATION
  Report Type: 
  Country: None (occurrence: None)
  Receive Date: 20101123
  Receipt Date: 20101112
  Transmission Date: 20110411
  Serious: Yes (Hospitalization, Other)
  Sender: FDA-Public Use
  Company Number: US-ELI_LILLY_AND_COMPANY-US201011004128

PATIENT
  Sex: Female

DRUGS (6)
  1. HUMALOG [Suspect]
     Indication: TYPE 1 DIABETES MELLITUS
     Dosage: 6 U, 3/D
  2. ISOSORBIDE MONONITRATE [Concomitant]
  3. ENALAPRIL MALEATE [Concomitant]
  4. ATENOLOL [Concomitant]
  5. NOVOLOG [Concomitant]
  6. LANTUS [Concomitant]
     Indication: TYPE 1 DIABETES MELLITUS
     Dosage: 12 U, 2/D

REACTIONS (3)
  - DIZZINESS [None]
  - HYPOGLYCAEMIC UNCONSCIOUSNESS [None]
  - TRANSIENT ISCHAEMIC ATTACK [None]
